FAERS Safety Report 24258144 (Version 1)
Quarter: 2024Q3

REPORT INFORMATION
  Report Type: Spontaneous
  Country: US (occurrence: US)
  Receive Date: 20240828
  Receipt Date: 20240828
  Transmission Date: 20241017
  Serious: No
  Sender: BRISTOL MYERS SQUIBB
  Company Number: US-BRISTOL-MYERS SQUIBB COMPANY-2024-135201

PATIENT
  Age: 79 Year
  Sex: Female
  Weight: 106.59 kg

DRUGS (2)
  1. ORENCIA [Suspect]
     Active Substance: ABATACEPT
     Indication: Rheumatoid arthritis
     Route: 058
     Dates: start: 201911
  2. OCALIVA [Concomitant]
     Active Substance: OBETICHOLIC ACID
     Indication: Product used for unknown indication

REACTIONS (2)
  - Decreased appetite [Unknown]
  - Weight decreased [Unknown]
